FAERS Safety Report 15163507 (Version 1)
Quarter: 2018Q3

REPORT INFORMATION
  Report Type: Spontaneous
  Country: BR (occurrence: BR)
  Receive Date: 20180719
  Receipt Date: 20180719
  Transmission Date: 20181010
  Serious: Yes (Hospitalization, Other)
  Sender: FDA-Public Use
  Company Number: BR-ROCHE-2152833

PATIENT
  Sex: Male

DRUGS (1)
  1. PULMOZYME [Suspect]
     Active Substance: DORNASE ALFA
     Indication: CYSTIC FIBROSIS
     Route: 065

REACTIONS (7)
  - Bronchial secretion retention [Unknown]
  - Underdose [Unknown]
  - Intentional product misuse [Unknown]
  - Pneumonitis [Unknown]
  - Intentional product use issue [Unknown]
  - Pulmonary haemorrhage [Unknown]
  - Dyspnoea [Unknown]
